FAERS Safety Report 7150764-1 (Version None)
Quarter: 2010Q4

REPORT INFORMATION
  Report Type: 
  Country: None (occurrence: None)
  Receive Date: 20101210
  Receipt Date: 20101130
  Transmission Date: 20110411
  Serious: Yes (Death, Hospitalization, Other)
  Sender: FDA-Public Use
  Company Number: JP-ROCHE-685424

PATIENT
  Sex: Female
  Weight: 37 kg

DRUGS (5)
  1. AVASTIN [Suspect]
     Indication: COLON CANCER METASTATIC
     Route: 041
     Dates: start: 20091208, end: 20100109
  2. ELPLAT [Concomitant]
     Route: 041
     Dates: start: 20091208, end: 20100223
  3. FLUOROURACIL [Concomitant]
     Route: 041
     Dates: start: 20091208, end: 20100223
  4. FLUOROURACIL [Concomitant]
     Dosage: ROUTE: INTRAVENOUS BOLUS
     Route: 041
     Dates: end: 20090201
  5. CALCIUM LEVOFOLINATE [Concomitant]
     Dosage: DRUG NAME: LEVOFOLINATE CALCIUM
     Route: 041
     Dates: start: 20091208, end: 20100223

REACTIONS (3)
  - DISSEMINATED INTRAVASCULAR COAGULATION [None]
  - GASTROINTESTINAL PERFORATION [None]
  - ILEUS [None]
